FAERS Safety Report 5029031-8 (Version None)
Quarter: 2006Q2

REPORT INFORMATION
  Report Type: 
  Country: None (occurrence: None)
  Receive Date: 20060501
  Receipt Date: 20060313
  Transmission Date: 20061013
  Serious: Yes (Other)
  Sender: FDA-Public Use
  Company Number: 200611652BWH

PATIENT
  Age: 58 Year
  Sex: Female
  Weight: 67.1324 kg

DRUGS (6)
  1. NEXAVAR [Suspect]
     Indication: RENAL CELL CARCINOMA STAGE UNSPECIFIED
     Dosage: 400 MG, BID, ORAL
     Route: 048
     Dates: start: 20060311, end: 20060315
  2. NEXAVAR [Suspect]
     Indication: RENAL CELL CARCINOMA STAGE UNSPECIFIED
     Dosage: 400 MG, BID, ORAL
     Route: 048
     Dates: start: 20060316
  3. CELEBREX [Concomitant]
  4. XANAX [Concomitant]
  5. DIOVAN [Concomitant]
  6. NEXAVAR [Concomitant]

REACTIONS (10)
  - ARTHRALGIA [None]
  - EATING DISORDER [None]
  - GLOSSODYNIA [None]
  - HYPERTENSION [None]
  - LARYNGITIS [None]
  - NECK PAIN [None]
  - PAIN IN EXTREMITY [None]
  - RASH [None]
  - SWOLLEN TONGUE [None]
  - TONGUE DISORDER [None]
